FAERS Safety Report 18883798 (Version 1)
Quarter: 2021Q1

REPORT INFORMATION
  Report Type: Other
  Country: DE (occurrence: DE)
  Receive Date: 20210211
  Receipt Date: 20210211
  Transmission Date: 20210420
  Serious: Yes (Hospitalization, Other)
  Sender: FDA-Public Use
  Company Number: DE-INCYTE CORPORATION-2021IN000918

PATIENT

DRUGS (2)
  1. JAKAVI [Suspect]
     Active Substance: RUXOLITINIB
     Indication: CHRONIC GRAFT VERSUS HOST DISEASE
     Dosage: 10 MG, Q12H (AKTUELLE DOSIS: 5 MG 1?0?1) (10 MG 1?0?1)
     Route: 048
     Dates: start: 20200601, end: 20210125
  2. ADVAGRAF [Concomitant]
     Active Substance: TACROLIMUS
     Indication: PROPHYLAXIS AGAINST TRANSPLANT REJECTION
     Dosage: 2 MG,QD (2 MG/D)
     Route: 065
     Dates: start: 200804, end: 202101

REACTIONS (2)
  - Lymphoma transformation [Unknown]
  - Cutaneous T-cell lymphoma recurrent [Not Recovered/Not Resolved]

NARRATIVE: CASE EVENT DATE: 20210104
